FAERS Safety Report 5960006-8 (Version None)
Quarter: 2008Q4

REPORT INFORMATION
  Report Type: 
  Country: None (occurrence: None)
  Receive Date: 20081119
  Receipt Date: 20081119
  Transmission Date: 20090506
  Serious: Yes (Hospitalization)
  Sender: FDA-Public Use
  Company Number: None

PATIENT
  Sex: Male
  Weight: 61.7 kg

DRUGS (5)
  1. PHENYTOIN [Suspect]
     Indication: CONVULSION
     Dosage: 500MG PO DAILY , 300MG AM, 200MG PM
     Route: 048
     Dates: start: 20080901
  2. PRILOSEC [Concomitant]
  3. IBUPROFEN TABLETS [Concomitant]
  4. BACTRIM DS [Concomitant]
  5. VALTREX [Concomitant]

REACTIONS (4)
  - ATAXIA [None]
  - DIPLOPIA [None]
  - NYSTAGMUS [None]
  - VISUAL IMPAIRMENT [None]
